FAERS Safety Report 7269392-2 (Version None)
Quarter: 2011Q1

REPORT INFORMATION
  Report Type: 
  Country: None (occurrence: None)
  Receive Date: 20110202
  Receipt Date: 20110125
  Transmission Date: 20110831
  Serious: Yes (Hospitalization)
  Sender: FDA-Public Use
  Company Number: US-BRISTOL-MYERS SQUIBB COMPANY-15511819

PATIENT
  Age: 73 Year
  Sex: Male
  Weight: 73 kg

DRUGS (2)
  1. CISPLATIN [Suspect]
     Indication: OESOPHAGEAL ADENOCARCINOMA
     Dosage: LAST DOSE:11JAN11, 25 MG/M2 ON DAYS 1,8,15,22,29+36
     Route: 042
     Dates: start: 20101221
  2. TAXOL [Suspect]
     Indication: OESOPHAGEAL ADENOCARCINOMA
     Dosage: LAST DOSE:11JAN11, 50 MG/M2
     Route: 042
     Dates: start: 20101221

REACTIONS (8)
  - WHITE BLOOD CELL COUNT DECREASED [None]
  - DYSPHAGIA [None]
  - VOMITING [None]
  - ANAEMIA [None]
  - DEHYDRATION [None]
  - PLATELET COUNT DECREASED [None]
  - NEUTROPHIL COUNT DECREASED [None]
  - NAUSEA [None]
